FAERS Safety Report 5537982-0 (Version None)
Quarter: 2007Q4

REPORT INFORMATION
  Report Type: 
  Country: None (occurrence: None)
  Receive Date: 20071207
  Receipt Date: 20071127
  Transmission Date: 20080405
  Serious: Yes (Hospitalization, Other)
  Sender: FDA-Public Use
  Company Number: BE-ABBOTT-07P-013-0425723-00

PATIENT
  Sex: Female
  Weight: 58.5 kg

DRUGS (3)
  1. KALETRA [Suspect]
     Indication: HIV INFECTION
     Dosage: 40/100MG
     Dates: start: 20070501
  2. ABACAVIR SULFATE W/LAMIVUDINE [Concomitant]
     Indication: DRUG USE FOR UNKNOWN INDICATION
     Dates: start: 20070501
  3. IRON [Concomitant]
     Indication: DRUG USE FOR UNKNOWN INDICATION

REACTIONS (5)
  - HYPOALBUMINAEMIA [None]
  - HYPOCHROMIC ANAEMIA [None]
  - LUNG DISORDER [None]
  - PNEUMONIA [None]
  - SEPSIS [None]
